FAERS Safety Report 8400922-0 (Version None)
Quarter: 2012Q2

REPORT INFORMATION
  Report Type: 
  Country: None (occurrence: None)
  Receive Date: 20120601
  Receipt Date: 20120522
  Transmission Date: 20120825
  Serious: Yes (Other)
  Sender: FDA-Public Use
  Company Number: FR-BRISTOL-MYERS SQUIBB COMPANY-16618506

PATIENT
  Age: 40 Year
  Sex: Female

DRUGS (5)
  1. BROMAZEPAM [Concomitant]
     Route: 048
  2. TAXOL [Suspect]
     Indication: BREAST CANCER METASTATIC
     Route: 042
     Dates: start: 20110520
  3. CYMBALTA [Concomitant]
     Route: 048
  4. ZOPICLONE [Concomitant]
     Route: 048
  5. AVASTIN [Suspect]
     Indication: BREAST CANCER METASTATIC
     Dosage: AVASTIN 25 MG/ML CONCENTRATE FOR SOLUTION FOR INFUSION
     Route: 042
     Dates: start: 20110520

REACTIONS (1)
  - NASAL SEPTUM PERFORATION [None]
